FAERS Safety Report 6229253-4 (Version None)
Quarter: 2009Q2

REPORT INFORMATION
  Report Type: 
  Country: None (occurrence: None)
  Receive Date: 20090615
  Receipt Date: 20090123
  Transmission Date: 20091009
  Serious: Yes (Hospitalization)
  Sender: FDA-Public Use
  Company Number: US-BAYER-200825249GPV

PATIENT
  Age: 44 Year
  Sex: Female
  Weight: 45 kg

DRUGS (10)
  1. CAMPATH [Suspect]
     Indication: CHRONIC LYMPHOCYTIC LEUKAEMIA
     Route: 042
     Dates: start: 20080507, end: 20080820
  2. FLUDARA [Suspect]
     Indication: CHRONIC LYMPHOCYTIC LEUKAEMIA
     Route: 042
     Dates: start: 20080512, end: 20080820
  3. ACYCLOVIR [Concomitant]
     Indication: ANTIVIRAL PROPHYLAXIS
     Route: 048
     Dates: start: 20070507
  4. CO-TRIMOXAZOLE [Concomitant]
     Route: 048
     Dates: start: 20080507
  5. METHYLPREDNISOLONE 4MG TAB [Concomitant]
     Indication: RHEUMATOID ARTHRITIS
     Route: 048
     Dates: start: 20080621, end: 20080808
  6. METRONIDAZOLE [Concomitant]
     Indication: ENTEROCOLITIS
     Route: 048
     Dates: start: 20080811, end: 20080821
  7. LOPERAMIDE HCL [Concomitant]
     Indication: ENTEROCOLITIS
     Route: 048
     Dates: start: 20080819, end: 20080821
  8. HILAK FORTE [Concomitant]
     Indication: ENTEROCOLITIS
     Dosage: 120 DROPS
     Route: 048
     Dates: start: 20080819
  9. PANCREATIN [Concomitant]
     Indication: ENTEROCOLITIS
     Route: 048
     Dates: start: 20080819
  10. INOSINE [Concomitant]
     Indication: ENTEROCOLITIS
     Dates: start: 20080819

REACTIONS (2)
  - COLITIS [None]
  - GASTROINTESTINAL HYPERMOTILITY [None]
